FAERS Safety Report 5473537-4 (Version None)
Quarter: 2007Q4

REPORT INFORMATION
  Report Type: 
  Country: None (occurrence: None)
  Receive Date: 20071001
  Receipt Date: 20060504
  Transmission Date: 20080405
  Serious: Yes (Hospitalization, Other)
  Sender: FDA-Public Use
  Company Number: US-PFIZER INC-2004046062

PATIENT
  Sex: Female
  Weight: 83.9 kg

DRUGS (8)
  1. NEURONTIN [Suspect]
     Indication: MIGRAINE
     Route: 048
  2. NEURONTIN [Suspect]
     Indication: CONVULSION
  3. NEURONTIN [Suspect]
     Indication: PAIN
  4. ATIVAN [Suspect]
     Indication: ILL-DEFINED DISORDER
     Route: 065
     Dates: start: 20040601, end: 20040601
  5. MS CONTIN [Concomitant]
     Route: 048
  6. MORPHINE [Concomitant]
     Route: 048
  7. RESTORIL [Concomitant]
     Route: 048
  8. DEPAKOTE [Concomitant]
     Route: 048

REACTIONS (20)
  - AMNESIA [None]
  - BLOOD GLUCOSE DECREASED [None]
  - BLOOD PRESSURE INCREASED [None]
  - CIRCULATORY COLLAPSE [None]
  - COMA [None]
  - CONVULSION [None]
  - DEPRESSION [None]
  - DIARRHOEA [None]
  - HAEMOGLOBIN DECREASED [None]
  - HALLUCINATION [None]
  - HYPERMETROPIA [None]
  - LOSS OF CONSCIOUSNESS [None]
  - OVERDOSE [None]
  - PAIN [None]
  - PANIC ATTACK [None]
  - POST GASTRIC SURGERY SYNDROME [None]
  - RESPIRATORY RATE DECREASED [None]
  - SOMNOLENCE [None]
  - UNEVALUABLE EVENT [None]
  - URINARY TRACT INFECTION [None]
